FAERS Safety Report 19000436 (Version 2)
Quarter: 2021Q1

REPORT INFORMATION
  Report Type: Spontaneous
  Country: AU (occurrence: AU)
  Receive Date: 20210311
  Receipt Date: 20210325
  Transmission Date: 20210420
  Serious: Yes (Other)
  Sender: FDA-Public Use
  Company Number: AU-BAUSCH-BL-2021-007283

PATIENT
  Age: 78 Year
  Sex: Female

DRUGS (2)
  1. ATROPINE. [Suspect]
     Active Substance: ATROPINE
     Indication: HEART RATE DECREASED
     Route: 065
  2. PROPRANOLOL HYDROCHLORIDE. [Suspect]
     Active Substance: PROPRANOLOL HYDROCHLORIDE
     Indication: PRODUCT USED FOR UNKNOWN INDICATION
     Route: 065

REACTIONS (6)
  - Confusional state [Unknown]
  - Heart rate decreased [Unknown]
  - Dehydration [Unknown]
  - Agitation [Unknown]
  - Delirium [Unknown]
  - Mydriasis [Unknown]
